FAERS Safety Report 8170623-5 (Version None)
Quarter: 2012Q1

REPORT INFORMATION
  Report Type: 
  Country: None (occurrence: None)
  Receive Date: 20120228
  Receipt Date: 20120220
  Transmission Date: 20120608
  Serious: Yes (Disabling)
  Sender: FDA-Public Use
  Company Number: NO-ROCHE-1042181

PATIENT
  Sex: Male

DRUGS (1)
  1. LARIAM [Suspect]
     Indication: MALARIA PROPHYLAXIS
     Route: 048

REACTIONS (4)
  - DEAFNESS [None]
  - DIZZINESS [None]
  - TINNITUS [None]
  - DISABILITY [None]
